FAERS Safety Report 7676901-8 (Version None)
Quarter: 2011Q3

REPORT INFORMATION
  Report Type: 
  Country: None (occurrence: None)
  Receive Date: 20110810
  Receipt Date: 20110810
  Transmission Date: 20111222
  Serious: Yes (Other)
  Sender: FDA-Public Use
  Company Number: None

PATIENT
  Age: 10 Year
  Sex: Female
  Weight: 33 kg

DRUGS (2)
  1. IV PREP ANTISEPTIC WIPES [Suspect]
     Indication: INFECTION PROPHYLAXIS
     Dosage: NOT APPLICABLE POSSIBLY
     Dates: start: 20101201, end: 20110428
  2. OMNIPOD [Suspect]

REACTIONS (9)
  - GASTROINTESTINAL DISORDER [None]
  - APPENDICITIS [None]
  - DIARRHOEA [None]
  - PRODUCT QUALITY ISSUE [None]
  - ABDOMINAL PAIN LOWER [None]
  - PYREXIA [None]
  - BLOOD GLUCOSE FLUCTUATION [None]
  - NAUSEA [None]
  - VOMITING [None]
